FAERS Safety Report 6941213-4 (Version None)
Quarter: 2010Q3

REPORT INFORMATION
  Report Type: 
  Country: None (occurrence: None)
  Receive Date: 20100825
  Receipt Date: 20100701
  Transmission Date: 20110219
  Serious: No
  Sender: FDA-Public Use
  Company Number: US-BRISTOL-MYERS SQUIBB COMPANY-15173768

PATIENT
  Age: 70 Year
  Sex: Female
  Weight: 63 kg

DRUGS (9)
  1. ONGLYZA [Suspect]
     Dosage: TABLET ONCE DAILY
     Dates: start: 20100628
  2. KLOR-CON [Concomitant]
  3. LOZOL [Concomitant]
  4. SLO-MAG [Concomitant]
  5. TENORMIN [Concomitant]
  6. DIOVAN [Concomitant]
  7. ATENOLOL [Concomitant]
  8. CELEBREX [Concomitant]
  9. ALLOPURINOL [Concomitant]

REACTIONS (2)
  - BLOOD GLUCOSE INCREASED [None]
  - PRURITUS [None]
